FAERS Safety Report 5232862-2 (Version None)
Quarter: 2007Q1

REPORT INFORMATION
  Report Type: 
  Country: None (occurrence: None)
  Receive Date: 20070207
  Receipt Date: 20070125
  Transmission Date: 20070707
  Serious: Yes (Hospitalization)
  Sender: FDA-Public Use
  Company Number: US-KINGPHARMUSA00001-K200700078

PATIENT

DRUGS (10)
  1. SEPTRA [Suspect]
     Indication: ANTIFUNGAL PROPHYLAXIS
     Dosage: 1 TABLET, QD
     Route: 048
     Dates: start: 20050701, end: 20050711
  2. ZIDOVUDINE [Suspect]
     Indication: ACQUIRED IMMUNODEFICIENCY SYNDROME
     Dosage: 400 MG, QD
     Route: 048
     Dates: start: 20050701, end: 20050907
  3. VALGANCICLOVIR HCL [Suspect]
     Indication: CYTOMEGALOVIRUS ENTEROCOLITIS
     Dosage: 900 MG, BID
     Route: 048
     Dates: start: 20050729, end: 20050818
  4. VALGANCICLOVIR HCL [Suspect]
     Dosage: 900 MG, QD
     Dates: start: 20051008
  5. LAMIVUDINE [Concomitant]
     Dates: start: 20050701
  6. RITONAVIR [Concomitant]
     Dates: start: 20060120
  7. KALETRA [Concomitant]
     Dates: start: 20050701, end: 20060120
  8. ATAZANAVIR [Concomitant]
     Dates: start: 20060120
  9. TENOFOVIR DISOPROXIL FUMARATE [Concomitant]
     Dates: start: 20050907
  10. ADENOSINE TRIPHOSPHATE [Concomitant]
     Dosage: UNK, UNK
     Dates: start: 20050913, end: 20051007

REACTIONS (5)
  - ANAEMIA [None]
  - HAEMATOCRIT DECREASED [None]
  - HAEMOGLOBIN DECREASED [None]
  - PLATELET COUNT DECREASED [None]
  - WHITE BLOOD CELL COUNT DECREASED [None]
